FAERS Safety Report 4527521-5 (Version None)
Quarter: 2004Q4

REPORT INFORMATION
  Report Type: 
  Country: None (occurrence: None)
  Receive Date: 20041123
  Receipt Date: 20040630
  Transmission Date: 20050328
  Serious: Yes (Other)
  Sender: FDA-Public Use
  Company Number: 2004039781

PATIENT
  Age: 74 Year
  Sex: Male
  Weight: 81.6475 kg

DRUGS (6)
  1. LIPITOR [Suspect]
     Indication: BLOOD CHOLESTEROL
     Dosage: 10 MG (10 MG, 1 IN 1 D), ORAL
     Route: 048
     Dates: start: 20020705, end: 20040601
  2. VITAMINS (VITAMINS) [Concomitant]
  3. IBUPROFEN [Concomitant]
  4. LOTREL [Concomitant]
  5. ALLOPURINOL [Concomitant]
  6. AMLODIPINE BESYLATE [Concomitant]
     Dates: start: 19950101

REACTIONS (1)
  - IRON DEFICIENCY ANAEMIA [None]
